FAERS Safety Report 6503940-2 (Version None)
Quarter: 2009Q4

REPORT INFORMATION
  Report Type: 
  Country: None (occurrence: None)
  Receive Date: 20091216
  Receipt Date: 20091216
  Transmission Date: 20100525
  Serious: Yes (Disabling, Other)
  Sender: FDA-Public Use
  Company Number: None

PATIENT
  Sex: Female
  Weight: 84.8226 kg

DRUGS (1)
  1. LEVEMIR [Suspect]

REACTIONS (3)
  - HYPOGLYCAEMIA [None]
  - PRODUCT FORMULATION ISSUE [None]
  - UNRESPONSIVE TO STIMULI [None]
